FAERS Safety Report 15472467 (Version 2)
Quarter: 2018Q4

REPORT INFORMATION
  Report Type: Spontaneous
  Country: BR (occurrence: BR)
  Receive Date: 20181008
  Receipt Date: 20181011
  Transmission Date: 20190205
  Serious: Yes (Death, Other)
  Sender: FDA-Public Use
  Company Number: BR-009507513-1810BRA002571

PATIENT
  Age: 64 Year
  Sex: Male

DRUGS (1)
  1. KEYTRUDA [Suspect]
     Active Substance: PEMBROLIZUMAB
     Indication: TRANSITIONAL CELL CARCINOMA
     Dosage: THE THIRD CYCLE

REACTIONS (3)
  - Malignant neoplasm progression [Unknown]
  - Death [Fatal]
  - Product use in unapproved indication [Unknown]
